FAERS Safety Report 16867055 (Version 1)
Quarter: 2019Q4

REPORT INFORMATION
  Report Type: Spontaneous
  Country: US (occurrence: US)
  Receive Date: 20190928
  Receipt Date: 20190928
  Transmission Date: 20200122
  Serious: Yes (Hospitalization)
  Sender: FDA-Public Use
  Company Number: None

PATIENT
  Age: 65 Year
  Sex: Female
  Weight: 56.25 kg

DRUGS (4)
  1. AMOXICILLIN. [Suspect]
     Active Substance: AMOXICILLIN
     Indication: URINARY TRACT INFECTION
     Dosage: ?          QUANTITY:2 TEASPOON(S);?
     Route: 048
     Dates: start: 20190925, end: 20190926
  2. SYMETHICONE [Concomitant]
  3. INHALER [Concomitant]
     Active Substance: UNSPECIFIED INGREDIENT
  4. PREVACID [Concomitant]
     Active Substance: LANSOPRAZOLE

REACTIONS (10)
  - Feeling abnormal [None]
  - Hyperhidrosis [None]
  - Transient ischaemic attack [None]
  - Cerebrovascular accident [None]
  - Chest discomfort [None]
  - Dysarthria [None]
  - Presyncope [None]
  - Peroneal nerve palsy [None]
  - Vocal cord dysfunction [None]
  - Hemiparesis [None]

NARRATIVE: CASE EVENT DATE: 20190925
